FAERS Safety Report 23034638 (Version 1)
Quarter: 2023Q4

REPORT INFORMATION
  Report Type: Spontaneous
  Country: US (occurrence: None)
  Receive Date: 20231005
  Receipt Date: 20231005
  Transmission Date: 20240110
  Serious: Yes (Hospitalization)
  Sender: FDA-Public Use
  Company Number: None

PATIENT
  Sex: Female

DRUGS (10)
  1. TACROLIMUS [Suspect]
     Active Substance: TACROLIMUS
     Indication: Renal transplant
     Route: 048
     Dates: start: 20230912
  2. BAQSIMI ONE [Concomitant]
  3. FERROUS SULF [Concomitant]
  4. LOSARTAN [Concomitant]
     Active Substance: LOSARTAN
  5. MYCOPHENOLIC ACID [Concomitant]
     Active Substance: MYCOPHENOLIC ACID
  6. NOVOLOG [Concomitant]
     Active Substance: INSULIN ASPART
  7. SIMVASTATIN [Concomitant]
     Active Substance: SIMVASTATIN
  8. TERCONAZOLE [Concomitant]
     Active Substance: TERCONAZOLE
  9. TRESIBA [Concomitant]
     Active Substance: INSULIN DEGLUDEC
  10. VALACYCLOVIR [Concomitant]
     Active Substance: VALACYCLOVIR HYDROCHLORIDE

REACTIONS (4)
  - Swelling [None]
  - Diarrhoea [None]
  - Abdominal discomfort [None]
  - Dyspepsia [None]
